FAERS Safety Report 8326774-5 (Version None)
Quarter: 2012Q2

REPORT INFORMATION
  Report Type: 
  Country: None (occurrence: None)
  Receive Date: 20120501
  Receipt Date: 20120425
  Transmission Date: 20120825
  Serious: No
  Sender: FDA-Public Use
  Company Number: CA-B.I. PHARMACEUTICALS,INC./RIDGEFIELD-2009-BP-04315BP

PATIENT
  Sex: Male
  Weight: 70 kg

DRUGS (2)
  1. MIRAPEX [Suspect]
     Indication: PARKINSON'S DISEASE
     Dates: start: 20000201, end: 20051125
  2. CARBIDOPA AND LEVODOPA [Concomitant]
     Dates: start: 20000101

REACTIONS (4)
  - GENERAL PHYSICAL HEALTH DETERIORATION [None]
  - PATHOLOGICAL GAMBLING [None]
  - DEPRESSION [None]
  - STRESS [None]
